FAERS Safety Report 12690939 (Version 1)
Quarter: 2016Q3

REPORT INFORMATION
  Report Type: Spontaneous
  Country: FR (occurrence: FR)
  Receive Date: 20160826
  Receipt Date: 20160826
  Transmission Date: 20161109
  Serious: Yes (Hospitalization)
  Sender: FDA-Public Use
  Company Number: FR-AMGEN-FRASP2016111101

PATIENT
  Age: 60 Year
  Sex: Female

DRUGS (11)
  1. NEULASTA [Suspect]
     Active Substance: PEGFILGRASTIM
     Indication: NEUTROPENIA
     Dosage: 6 MG, UNK
     Route: 058
     Dates: start: 20160704, end: 20160704
  2. DOCETAXEL. [Suspect]
     Active Substance: DOCETAXEL
     Indication: BREAST CANCER
     Dosage: UNK
     Route: 042
     Dates: start: 20160629, end: 20160629
  3. TEGRETOL [Concomitant]
     Active Substance: CARBAMAZEPINE
     Dosage: 200 MG, BID (2/DAY)
  4. DOLIPRANE [Concomitant]
     Active Substance: ACETAMINOPHEN
     Dosage: 1 G, Q8H (EVERY 8 HOURS IF NEEDED)
  5. ROCEPHINE [Concomitant]
     Active Substance: CEFTRIAXONE SODIUM
     Indication: ESCHERICHIA INFECTION
  6. ATARAX [Concomitant]
     Active Substance: HYDROXYZINE\HYDROXYZINE HYDROCHLORIDE
     Dosage: 25 MG, QHS (AT BEDTIME)
  7. INEXIUM [Concomitant]
     Active Substance: ESOMEPRAZOLE
     Dosage: 40 MG, QD (1 COMP MORNING)
  8. GARDENAL [Concomitant]
     Active Substance: PHENOBARBITAL
     Dosage: 100 MG, QD (100 MG/DAY)
  9. SERESTA [Concomitant]
     Active Substance: OXAZEPAM
     Dosage: 10 MG (2 MORNING, 2 EVENING)
  10. SEROPLEX [Concomitant]
     Active Substance: ESCITALOPRAM OXALATE
     Dosage: 10 MG, QD (1/DAY)
  11. ROCEPHINE [Concomitant]
     Active Substance: CEFTRIAXONE SODIUM
     Indication: PYELONEPHRITIS ACUTE
     Dosage: 1 G, QD (1G/DAY)
     Dates: end: 20160729

REACTIONS (3)
  - Pyelonephritis acute [Unknown]
  - Escherichia infection [Unknown]
  - Carotidynia [Recovered/Resolved]

NARRATIVE: CASE EVENT DATE: 20160712
